FAERS Safety Report 7037224-3 (Version None)
Quarter: 2010Q4

REPORT INFORMATION
  Report Type: 
  Country: None (occurrence: None)
  Receive Date: 20101011
  Receipt Date: 20101005
  Transmission Date: 20110411
  Serious: Yes (Hospitalization)
  Sender: FDA-Public Use
  Company Number: GB-ROCHE-728125

PATIENT
  Sex: Female
  Weight: 74.7 kg

DRUGS (1)
  1. MYCOPHENOLATE MOFETIL [Suspect]
     Indication: VASCULITIS
     Dosage: FREQUENCY OF DOSING INCREASED 1 GM TWICE A DAY (BD) TO TDS THREE TIMES A DAY
     Route: 065
     Dates: start: 20100107

REACTIONS (1)
  - LARYNGEAL GRANULOMA [None]
